FAERS Safety Report 24704780 (Version 5)
Quarter: 2025Q2

REPORT INFORMATION
  Report Type: Report from Study
  Country: VN (occurrence: VN)
  Receive Date: 20241206
  Receipt Date: 20250610
  Transmission Date: 20250716
  Serious: Yes (Other)
  Sender: TAKEDA
  Company Number: VN-JNJFOC-20241007742

PATIENT
  Age: 42 Year
  Sex: Male

DRUGS (11)
  1. BORTEZOMIB [Suspect]
     Active Substance: BORTEZOMIB
     Indication: Plasma cell myeloma refractory
  2. DEXAMETHASONE [Suspect]
     Active Substance: DEXAMETHASONE
     Indication: Product used for unknown indication
  3. DARZALEX [Suspect]
     Active Substance: DARATUMUMAB
     Indication: Plasma cell myeloma refractory
  4. DARZALEX [Suspect]
     Active Substance: DARATUMUMAB
  5. DARZALEX [Suspect]
     Active Substance: DARATUMUMAB
  6. DARZALEX [Suspect]
     Active Substance: DARATUMUMAB
  7. DARZALEX [Suspect]
     Active Substance: DARATUMUMAB
  8. DARZALEX [Suspect]
     Active Substance: DARATUMUMAB
  9. DARZALEX [Suspect]
     Active Substance: DARATUMUMAB
  10. DARZALEX [Suspect]
     Active Substance: DARATUMUMAB
  11. DARZALEX [Suspect]
     Active Substance: DARATUMUMAB

REACTIONS (3)
  - Stem cell transplant [Unknown]
  - Pyrexia [Recovered/Resolved]
  - Inappropriate schedule of product administration [Unknown]

NARRATIVE: CASE EVENT DATE: 20241001
